FAERS Safety Report 8424645-7 (Version None)
Quarter: 2012Q2

REPORT INFORMATION
  Report Type: 
  Country: None (occurrence: None)
  Receive Date: 20120605
  Receipt Date: 20120605
  Transmission Date: 20120825
  Serious: Yes (Other)
  Sender: FDA-Public Use
  Company Number: None

PATIENT
  Age: 47 Year
  Sex: Female
  Weight: 70.3075 kg

DRUGS (1)
  1. INDOMETHACIN [Suspect]
     Indication: HEADACHE
     Dosage: ONE 50 MG CAPSULE ONE TIME PO
     Route: 048
     Dates: start: 20120604, end: 20120604

REACTIONS (7)
  - FEELING ABNORMAL [None]
  - RESPIRATORY RATE INCREASED [None]
  - HEART RATE INCREASED [None]
  - HYPERHIDROSIS [None]
  - NAUSEA [None]
  - DYSSTASIA [None]
  - DIZZINESS [None]
